FAERS Safety Report 25284224 (Version 1)
Quarter: 2025Q2

REPORT INFORMATION
  Report Type: Spontaneous
  Country: GB (occurrence: GB)
  Receive Date: 20250508
  Receipt Date: 20250508
  Transmission Date: 20250717
  Serious: Yes (Life-Threatening, Hospitalization, Disabling, Other)
  Sender: ELI LILLY AND COMPANY
  Company Number: GB-MHRA-WEBRADR-202505021019359950-NPRDW

PATIENT
  Age: 30 Year
  Sex: Female

DRUGS (1)
  1. TRULICITY [Suspect]
     Active Substance: DULAGLUTIDE
     Indication: Diabetes mellitus
     Route: 058
     Dates: start: 20230502, end: 20241002

REACTIONS (2)
  - Gastroparesis postoperative [Not Recovered/Not Resolved]
  - Monoparesis [Unknown]

NARRATIVE: CASE EVENT DATE: 20240502
